FAERS Safety Report 21707223 (Version 1)
Quarter: 2022Q4

REPORT INFORMATION
  Report Type: Report from Study
  Country: US (occurrence: US)
  Receive Date: 20221209
  Receipt Date: 20221209
  Transmission Date: 20230113
  Serious: Yes (Hospitalization, Other)
  Sender: FDA-Public Use
  Company Number: US-VERTEX PHARMACEUTICALS-2022-017745

PATIENT
  Sex: Female

DRUGS (1)
  1. TRIKAFTA [Suspect]
     Active Substance: ELEXACAFTOR\IVACAFTOR\TEZACAFTOR
     Indication: Cystic fibrosis
     Dosage: FULL DOSE
     Route: 048
     Dates: start: 20200130, end: 20221121

REACTIONS (5)
  - Gastritis [Not Recovered/Not Resolved]
  - Hepatitis cholestatic [Not Recovered/Not Resolved]
  - Blood glucose increased [Recovered/Resolved]
  - Protein total decreased [Recovered/Resolved]
  - Blood albumin decreased [Recovered/Resolved]

NARRATIVE: CASE EVENT DATE: 20220101
